FAERS Safety Report 4359545-5 (Version None)
Quarter: 2004Q2

REPORT INFORMATION
  Report Type: 
  Country: None (occurrence: None)
  Receive Date: 20040514
  Receipt Date: 20040514
  Transmission Date: 20050107
  Serious: Yes (Hospitalization)
  Sender: FDA-Public Use
  Company Number: None

PATIENT
  Age: 80 Year
  Sex: Male

DRUGS (3)
  1. RITUXAN [Suspect]
     Indication: CARCINOMA
     Dosage: 800 MG IV X 1
     Route: 042
     Dates: start: 20040428
  2. TYLENOL [Concomitant]
  3. BENADRYL [Concomitant]

REACTIONS (2)
  - PRURITUS [None]
  - URTICARIA [None]
